FAERS Safety Report 7226656-6 (Version None)
Quarter: 2011Q1

REPORT INFORMATION
  Report Type: 
  Country: None (occurrence: None)
  Receive Date: 20110110
  Receipt Date: 20110110
  Transmission Date: 20110831
  Serious: Yes (Life-Threatening)
  Sender: FDA-Public Use
  Company Number: None

PATIENT
  Age: 74 Year
  Sex: Female
  Weight: 71.2147 kg

DRUGS (1)
  1. CYMBALTA [Suspect]
     Indication: DEPRESSION
     Dosage: 1 PER DAY TOOK ONCE
     Dates: start: 20100105, end: 20100105

REACTIONS (6)
  - CHILLS [None]
  - NAUSEA [None]
  - MUSCLE SPASMS [None]
  - DIZZINESS [None]
  - DIARRHOEA [None]
  - ABDOMINAL PAIN UPPER [None]
